FAERS Safety Report 7227029-2 (Version None)
Quarter: 2011Q1

REPORT INFORMATION
  Report Type: 
  Country: None (occurrence: None)
  Receive Date: 20110114
  Receipt Date: 20110106
  Transmission Date: 20110831
  Serious: Yes (Hospitalization)
  Sender: FDA-Public Use
  Company Number: PHHO2011FR00700

PATIENT
  Sex: Male
  Weight: 67 kg

DRUGS (10)
  1. XANAX [Concomitant]
  2. ZOLEDRONATE [Suspect]
     Indication: METASTASES TO BONE
  3. CISPLATIN [Concomitant]
  4. TOPALGIC [Concomitant]
  5. AUGMENTIN '125' [Concomitant]
  6. VITAMIN D [Concomitant]
     Indication: METASTASES TO BONE
  7. CALCIUM [Concomitant]
     Indication: METASTASES TO BONE
  8. DOXORUBICIN HCL [Concomitant]
  9. ESOMEPRAZOLE [Concomitant]
  10. HOLOXAN [Concomitant]
     Indication: METASTASES TO BONE
     Dosage: 5425 MG, UNK
     Route: 042
     Dates: start: 20101005

REACTIONS (2)
  - HYPOTHERMIA [None]
  - CHILLS [None]
